FAERS Safety Report 8432778-4 (Version None)
Quarter: 2012Q2

REPORT INFORMATION
  Report Type: 
  Country: None (occurrence: None)
  Receive Date: 20120613
  Receipt Date: 20120607
  Transmission Date: 20120825
  Serious: No
  Sender: FDA-Public Use
  Company Number: US-PFIZER INC-2011266839

PATIENT
  Sex: Female
  Weight: 49.887 kg

DRUGS (2)
  1. ADVIL [Suspect]
     Indication: MUSCLE SPASMS
     Dosage: 200 MG, AS NEEDED
     Route: 048
     Dates: start: 20111001
  2. ADVIL [Suspect]
     Indication: DYSMENORRHOEA
     Dosage: 200 MG, AS NEEDED
     Route: 048
     Dates: end: 20111001

REACTIONS (1)
  - DRUG INEFFECTIVE [None]
